FAERS Safety Report 14539148 (Version 1)
Quarter: 2018Q1

REPORT INFORMATION
  Report Type: Spontaneous
  Country: US (occurrence: US)
  Receive Date: 20180214
  Receipt Date: 20180214
  Transmission Date: 20180509
  Serious: Yes (Hospitalization)
  Sender: FDA-Public Use
  Company Number: None

PATIENT
  Age: 54 Year
  Sex: Female

DRUGS (9)
  1. IBUPROFEN. [Concomitant]
     Active Substance: IBUPROFEN
  2. CLARITIN [Concomitant]
     Active Substance: LORATADINE
  3. MUCINEX [Concomitant]
     Active Substance: GUAIFENESIN
  4. ACTEMRA [Suspect]
     Active Substance: TOCILIZUMAB
     Indication: RHEUMATOID ARTHRITIS
     Route: 058
     Dates: start: 20170929
  5. OTEZLA [Concomitant]
     Active Substance: APREMILAST
  6. ZOLOFT [Concomitant]
     Active Substance: SERTRALINE HYDROCHLORIDE
  7. SYNTHROID [Concomitant]
     Active Substance: LEVOTHYROXINE SODIUM
  8. VITAMIN D [Concomitant]
     Active Substance: CHOLECALCIFEROL
  9. VITAMIN C [Concomitant]
     Active Substance: ASCORBIC ACID

REACTIONS (1)
  - Surgery [None]

NARRATIVE: CASE EVENT DATE: 20180213
